FAERS Safety Report 10152236 (Version 1)
Quarter: 2014Q2

REPORT INFORMATION
  Report Type: Spontaneous
  Country: NO (occurrence: None)
  Receive Date: 20140501
  Receipt Date: 20140501
  Transmission Date: 20141212
  Serious: Yes (Hospitalization)
  Sender: FDA-Public Use
  Company Number: 2293847

PATIENT
  Sex: Male

DRUGS (14)
  1. VINCRISTINE SULFATE [Suspect]
     Indication: DIFFUSE LARGE B-CELL LYMPHOMA
  2. RITUXIMAB [Suspect]
     Indication: DIFFUSE LARGE B-CELL LYMPHOMA
  3. CYCLOPHOSPHAMIDE [Suspect]
     Indication: DIFFUSE LARGE B-CELL LYMPHOMA
  4. DOXORUBICIN [Suspect]
     Indication: DIFFUSE LARGE B-CELL LYMPHOMA
  5. PREDNISOLONE [Suspect]
     Indication: DIFFUSE LARGE B-CELL LYMPHOMA
  6. PREDNISOLONE [Suspect]
     Indication: DIFFUSE LARGE B-CELL LYMPHOMA
  7. METHYLPREDNISOLONE [Suspect]
     Indication: TRANSPLANT REJECTION
     Dosage: INTRAVENOUS (NOT OTHERWISE SPECIFIED)
     Route: 042
  8. ANTITHYMOCYTE IMMUNOGLOBULIN [Suspect]
     Indication: TRANSPLANT REJECTION
  9. TACROLIMUS [Suspect]
     Indication: PRODUCT USED FOR UNKNOWN INDICATION
  10. INSULIN [Concomitant]
  11. ANTIHYPERTENSIVES [Concomitant]
  12. ASPIRIN [Concomitant]
  13. TRIMETHOPRIM SULFAMETHOXAZOLE) [Concomitant]
  14. EMTRICITABINE [Concomitant]

REACTIONS (15)
  - Strongyloidiasis [None]
  - Infection reactivation [None]
  - Hypotension [None]
  - Anaemia [None]
  - Leukocytosis [None]
  - Eosinophilia [None]
  - Blood creatinine increased [None]
  - Pulmonary fibrosis [None]
  - Crepitations [None]
  - Cytomegalovirus test positive [None]
  - Vocal cord polyp [None]
  - Biopsy site unspecified abnormal [None]
  - Fatigue [None]
  - Feeling cold [None]
  - Respiratory disorder [None]
